FAERS Safety Report 8235625-9 (Version None)
Quarter: 2012Q1

REPORT INFORMATION
  Report Type: 
  Country: None (occurrence: None)
  Receive Date: 20120326
  Receipt Date: 20120312
  Transmission Date: 20120608
  Serious: Yes (Hospitalization)
  Sender: FDA-Public Use
  Company Number: HR-UCBSA-053288

PATIENT
  Sex: Female

DRUGS (1)
  1. XYZAL [Suspect]
     Indication: URTICARIA

REACTIONS (4)
  - LEUKAEMIA [None]
  - MATERNAL EXPOSURE DURING PREGNANCY [None]
  - URTICARIA [None]
  - ADVERSE EVENT [None]
